FAERS Safety Report 22783274 (Version 2)
Quarter: 2024Q1

REPORT INFORMATION
  Report Type: Spontaneous
  Country: US (occurrence: US)
  Receive Date: 20230803
  Receipt Date: 20240129
  Transmission Date: 20240410
  Serious: No
  Sender: FDA-Public Use
  Company Number: US-SAREPTA THERAPEUTICS INC.-SRP2023-003541

PATIENT
  Age: 9 Year
  Sex: Male
  Weight: 36.553 kg

DRUGS (3)
  1. AMONDYS 45 [Suspect]
     Active Substance: CASIMERSEN
     Indication: Product used for unknown indication
     Dosage: 1000 MILLIGRAM, WEEKLY (100MG/2ML)
     Route: 042
     Dates: start: 20220812, end: 20230616
  2. AMONDYS 45 [Suspect]
     Active Substance: CASIMERSEN
     Dosage: 1000 MILLIGRAM, WEEKLY
     Route: 042
     Dates: start: 20230629
  3. EMFLAZA [Concomitant]
     Active Substance: DEFLAZACORT
     Indication: Product used for unknown indication
     Dosage: 7 MILLILITER (22.75 MG/ML), QD
     Route: 048

REACTIONS (2)
  - Poor venous access [Recovered/Resolved]
  - Infusion site scar [Not Recovered/Not Resolved]

NARRATIVE: CASE EVENT DATE: 20230622
